FAERS Safety Report 12859360 (Version 1)
Quarter: 2016Q4

REPORT INFORMATION
  Report Type: Spontaneous
  Country: US (occurrence: US)
  Receive Date: 20161018
  Receipt Date: 20161018
  Transmission Date: 20170207
  Serious: No
  Sender: FDA-Public Use
  Company Number: PHEH2016US026752

PATIENT
  Sex: Female

DRUGS (1)
  1. VOTRIENT [Suspect]
     Active Substance: PAZOPANIB HYDROCHLORIDE
     Indication: MALAISE
     Dosage: 800 MG, QD
     Route: 048
     Dates: start: 20160720

REACTIONS (2)
  - Product use issue [Unknown]
  - Drug ineffective [Unknown]
